FAERS Safety Report 9947540 (Version 1)
Quarter: 2014Q1

REPORT INFORMATION
  Report Type: Report from Study
  Country: US (occurrence: US)
  Receive Date: 20140303
  Receipt Date: 20140303
  Transmission Date: 20141002
  Serious: No
  Sender: FDA-Public Use
  Company Number: US-ABBVIE-13P-163-1062733-00

PATIENT
  Age: 52 Year
  Sex: Female

DRUGS (9)
  1. HUMIRA [Suspect]
     Indication: ANKYLOSING SPONDYLITIS
     Dates: start: 200803
  2. PEMPRO [Concomitant]
     Indication: PRODUCT USED FOR UNKNOWN INDICATION
  3. LORTAB [Concomitant]
     Indication: PRODUCT USED FOR UNKNOWN INDICATION
  4. MOBIC [Concomitant]
     Indication: PRODUCT USED FOR UNKNOWN INDICATION
  5. VISTARIL [Concomitant]
     Indication: PRODUCT USED FOR UNKNOWN INDICATION
  6. BONIVA [Concomitant]
     Indication: PRODUCT USED FOR UNKNOWN INDICATION
  7. SOMA [Concomitant]
     Indication: PRODUCT USED FOR UNKNOWN INDICATION
  8. PRESTIQ [Concomitant]
     Indication: PRODUCT USED FOR UNKNOWN INDICATION
  9. BUTROMS PATCH [Concomitant]
     Indication: PRODUCT USED FOR UNKNOWN INDICATION
     Dosage: PATCH

REACTIONS (2)
  - Rhinorrhoea [Not Recovered/Not Resolved]
  - Influenza [Recovered/Resolved]
